FAERS Safety Report 6709926-7 (Version None)
Quarter: 2010Q2

REPORT INFORMATION
  Report Type: 
  Country: None (occurrence: None)
  Receive Date: 20100504
  Receipt Date: 20100428
  Transmission Date: 20101027
  Serious: Yes (Disabling, Other)
  Sender: FDA-Public Use
  Company Number: US-ASTRAZENECA-2010SE17254

PATIENT
  Age: 268 Month
  Sex: Male
  Weight: 81.6 kg

DRUGS (4)
  1. SEROQUEL [Suspect]
     Indication: PSYCHOTIC DISORDER
     Route: 048
     Dates: start: 20080228, end: 20100223
  2. SEROQUEL [Suspect]
     Route: 048
     Dates: start: 20100223
  3. PROZAC [Concomitant]
     Indication: DEPRESSION
     Route: 048
     Dates: start: 20080912
  4. PROZAC [Concomitant]
     Indication: ANXIETY
     Route: 048
     Dates: start: 20080912

REACTIONS (1)
  - OSTEONECROSIS [None]
